FAERS Safety Report 4357844-4 (Version None)
Quarter: 2004Q2

REPORT INFORMATION
  Report Type: 
  Country: None (occurrence: None)
  Receive Date: 20040512
  Receipt Date: 20030630
  Transmission Date: 20050107
  Serious: Yes (Hospitalization)
  Sender: FDA-Public Use
  Company Number: 2003IC000416

PATIENT
  Age: 61 Year
  Sex: Female

DRUGS (4)
  1. FLUOROURACIL [Suspect]
     Indication: COLORECTAL CANCER
     Dosage: 1900 MG; DAY 1 + 2; INTRAVENOUS
     Route: 042
     Dates: start: 20030409, end: 20030606
  2. PTK787/ZK 222584 VS PLACEBO (GENERIC UNKNOWN) [Suspect]
     Indication: COLORECTAL CANCER
     Dosage: 1250 MG; DAILY; ORAL
     Route: 048
     Dates: start: 20030409, end: 20030606
  3. OXALIPLATIN [Concomitant]
  4. LEUCOVORIN CALCIUM [Concomitant]

REACTIONS (5)
  - DEHYDRATION [None]
  - DIARRHOEA [None]
  - DRUG TOXICITY [None]
  - FEBRILE NEUTROPENIA [None]
  - VOMITING [None]
